FAERS Safety Report 7416491-8 (Version None)
Quarter: 2011Q2

REPORT INFORMATION
  Report Type: 
  Country: None (occurrence: None)
  Receive Date: 20110414
  Receipt Date: 20110413
  Transmission Date: 20111010
  Serious: Yes (Life-Threatening, Hospitalization)
  Sender: FDA-Public Use
  Company Number: AT-BAYER-2011-031814

PATIENT
  Age: 71 Year
  Sex: Female
  Weight: 71.7 kg

DRUGS (13)
  1. KALIORAL [CITRIC ACID,POTASSIUM BICARBONATE,POTASSIUM CITRATE] [Concomitant]
     Dosage: 1 DF, QD
  2. CONCOR [Concomitant]
     Dosage: 5 MG, QD
     Dates: start: 20101118
  3. DIAMICRON [Concomitant]
     Dosage: 30 MG, QD
  4. LEVOTHYROXINE SODIUM [Concomitant]
     Dosage: 75 ?G, QD
  5. PANTOLOC [Concomitant]
     Dosage: 40 MG, QD
  6. SINTROM [Concomitant]
  7. SYMBICORT [Concomitant]
     Dosage: 1 DF, QD
  8. ACTONEL [Concomitant]
     Dosage: 35 MG, OW
  9. PANTOLOC [Concomitant]
     Dosage: 40 MG, BID
  10. SPIRIVA [Concomitant]
     Dosage: 18 ?G, QD
  11. AVELOX [Suspect]
     Indication: BRONCHITIS
  12. LASIX [Concomitant]
     Dosage: 40 MG, QD
  13. CAL-D-VITA [Concomitant]
     Dosage: 1 DF, BID

REACTIONS (10)
  - TOXIC EPIDERMAL NECROLYSIS [None]
  - GENERAL PHYSICAL HEALTH DETERIORATION [None]
  - ATRIAL FLUTTER [None]
  - DRUG ERUPTION [None]
  - DERMATITIS EXFOLIATIVE [None]
  - BODY TEMPERATURE INCREASED [None]
  - NAUSEA [None]
  - BLISTER [None]
  - CHILLS [None]
  - VOMITING [None]
